FAERS Safety Report 21414129 (Version 1)
Quarter: 2022Q4

REPORT INFORMATION
  Report Type: Spontaneous
  Country: KR (occurrence: KR)
  Receive Date: 20221006
  Receipt Date: 20221006
  Transmission Date: 20230113
  Serious: Yes (Other)
  Sender: FDA-Public Use
  Company Number: KR-JNJFOC-20220962339

PATIENT
  Age: 26 Year
  Sex: Female

DRUGS (15)
  1. SPRAVATO [Suspect]
     Active Substance: ESKETAMINE
     Indication: Depression
     Dosage: 8 DOSES
     Dates: start: 20220221, end: 20220317
  2. SPRAVATO [Suspect]
     Active Substance: ESKETAMINE
     Indication: Suicide attempt
     Dosage: 4 TIMES
     Dates: start: 20220321, end: 20220411
  3. SPRAVATO [Suspect]
     Active Substance: ESKETAMINE
     Dosage: 4 DOSES SO FAR
     Dates: start: 20220425
  4. QUETIAPINE [Concomitant]
     Active Substance: QUETIAPINE
     Indication: Irritability
     Dates: start: 20220221, end: 20220304
  5. QUETIAPINE [Concomitant]
     Active Substance: QUETIAPINE
     Indication: Agitation
     Dates: start: 2022
  6. MIRTAZAPINE [Concomitant]
     Active Substance: MIRTAZAPINE
     Indication: Irritability
     Dates: start: 20220221, end: 20220304
  7. MIRTAZAPINE [Concomitant]
     Active Substance: MIRTAZAPINE
     Indication: Agitation
     Dates: start: 202203
  8. MIRTAZAPINE [Concomitant]
     Active Substance: MIRTAZAPINE
     Indication: Anxiety
     Dates: start: 20220314
  9. VORTIOXETINE [Concomitant]
     Active Substance: VORTIOXETINE
     Dates: start: 2022
  10. VORTIOXETINE [Concomitant]
     Active Substance: VORTIOXETINE
     Dates: start: 20220307
  11. BUSPIRONE [Concomitant]
     Active Substance: BUSPIRONE HYDROCHLORIDE
     Indication: Anxiety
     Dates: start: 20220330
  12. TRAZODONE [Concomitant]
     Active Substance: TRAZODONE HYDROCHLORIDE
  13. ESCITALOPRAM [Concomitant]
     Active Substance: ESCITALOPRAM OXALATE
  14. ALPRAZOLAM [Concomitant]
     Active Substance: ALPRAZOLAM
  15. ARIPIPRAZOLE [Concomitant]
     Active Substance: ARIPIPRAZOLE

REACTIONS (2)
  - Suicidal ideation [Recovering/Resolving]
  - Depression [Recovering/Resolving]

NARRATIVE: CASE EVENT DATE: 20220201
